FAERS Safety Report 4323772-3 (Version None)
Quarter: 2004Q1

REPORT INFORMATION
  Report Type: 
  Country: None (occurrence: None)
  Receive Date: 20040323
  Receipt Date: 20040311
  Transmission Date: 20041129
  Serious: No
  Sender: FDA-Public Use
  Company Number: K200400359

PATIENT
  Age: 25 Year
  Sex: Female

DRUGS (3)
  1. NORDETTE-21 [Suspect]
     Indication: ORAL CONTRACEPTION
     Dosage: 1 TABLET, ORAL
     Route: 048
     Dates: start: 19990101, end: 20031201
  2. NORDETTE-21 [Suspect]
     Indication: ORAL CONTRACEPTION
     Dosage: 1 TABLET, ORAL
     Route: 048
     Dates: start: 20040225
  3. ANADOR (METAMIZOLE) [Concomitant]

REACTIONS (2)
  - OVARIAN CYST [None]
  - WEIGHT INCREASED [None]
